FAERS Safety Report 8995026 (Version 1)
Quarter: 2012Q4

REPORT INFORMATION
  Report Type: Spontaneous
  Country: US (occurrence: None)
  Receive Date: 20121228
  Receipt Date: 20121228
  Transmission Date: 20130627
  Serious: Yes (Hospitalization)
  Sender: FDA-Public Use
  Company Number: None

PATIENT
  Age: 51 Year
  Sex: Male
  Weight: 93 kg

DRUGS (1)
  1. ACETAZOLAMIDE [Suspect]
     Indication: GLAUCOMA
     Dosage: 500 MG EVERY DAY PO
     Route: 048
     Dates: start: 20120830, end: 20120905

REACTIONS (5)
  - Hypovolaemia [None]
  - Renal failure acute [None]
  - Nausea [None]
  - Vomiting [None]
  - Hypophagia [None]
